FAERS Safety Report 6288085-1 (Version None)
Quarter: 2009Q3

REPORT INFORMATION
  Report Type: 
  Country: None (occurrence: None)
  Receive Date: 20090729
  Receipt Date: 20090724
  Transmission Date: 20100115
  Serious: Yes (Death, Life-Threatening)
  Sender: FDA-Public Use
  Company Number: DE-BAYER-200926293GPV

PATIENT
  Age: 77 Year
  Sex: Male

DRUGS (10)
  1. NEXAVAR [Suspect]
     Indication: HEPATIC NEOPLASM MALIGNANT
     Dosage: UNIT DOSE: 200 MG
     Route: 048
     Dates: start: 20090623
  2. NEXAVAR [Suspect]
     Dosage: TOTAL DAILY DOSE: 800 MG  UNIT DOSE: 200 MG
     Route: 048
     Dates: start: 20090626
  3. NEXAVAR [Suspect]
     Dosage: TOTAL DAILY DOSE: 200 MG  UNIT DOSE: 200 MG
     Route: 048
     Dates: start: 20090620
  4. ASPIRIN [Concomitant]
  5. GLIMEPIRIDE [Concomitant]
  6. METFORMIN [Concomitant]
  7. MOXONIDIN [Concomitant]
     Dosage: UNIT DOSE: 0.3 MG
  8. SIMVASTATIN [Concomitant]
  9. SPIRONOLACTONE [Concomitant]
  10. TORSEMIDE [Concomitant]

REACTIONS (4)
  - LOWER GASTROINTESTINAL HAEMORRHAGE [None]
  - METABOLIC ACIDOSIS [None]
  - PULMONARY OEDEMA [None]
  - RENAL FAILURE ACUTE [None]
